FAERS Safety Report 11352298 (Version 1)
Quarter: 2015Q3

REPORT INFORMATION
  Report Type: Spontaneous
  Country: US (occurrence: US)
  Receive Date: 20150807
  Receipt Date: 20150807
  Transmission Date: 20151125
  Serious: No
  Sender: FDA-Public Use
  Company Number: US-JNJFOC-20140610022

PATIENT
  Age: 69 Year
  Sex: Female
  Weight: 68.04 kg

DRUGS (1)
  1. MENS ROGAINE EXTRA STRENGTH [Suspect]
     Active Substance: MINOXIDIL
     Indication: ALOPECIA
     Dosage: DOSAGE: 1/2 CAPFUL
     Route: 061
     Dates: start: 20140611

REACTIONS (3)
  - Wrong patient received medication [Unknown]
  - Feeling abnormal [Recovered/Resolved]
  - Skin disorder [Recovered/Resolved]
